FAERS Safety Report 13754251 (Version 4)
Quarter: 2017Q4

REPORT INFORMATION
  Report Type: Report from Study
  Country: DE (occurrence: DE)
  Receive Date: 20170714
  Receipt Date: 20171214
  Transmission Date: 20180320
  Serious: Yes (Hospitalization, Other)
  Sender: FDA-Public Use
  Company Number: DE-INCYTE CORPORATION-2017IN004759

PATIENT

DRUGS (44)
  1. INCB018424 [Suspect]
     Active Substance: RUXOLITINIB
     Dosage: 40 MG, QD
     Route: 048
     Dates: start: 20150112, end: 20150202
  2. INCB018424 [Suspect]
     Active Substance: RUXOLITINIB
     Dosage: 30 MG, QD
     Route: 048
     Dates: start: 20150422, end: 20150505
  3. ALLOPURINOL. [Concomitant]
     Active Substance: ALLOPURINOL
     Dosage: 300 MG, QD
     Route: 065
  4. NSAIDS [Concomitant]
     Active Substance: UNSPECIFIED INGREDIENT
     Indication: PRODUCT USED FOR UNKNOWN INDICATION
  5. BROMAZEPAM [Concomitant]
     Active Substance: BROMAZEPAM
     Indication: ANXIETY
     Dosage: 6 MG, UNK
     Route: 065
     Dates: start: 20141106
  6. INCB018424 [Suspect]
     Active Substance: RUXOLITINIB
     Dosage: 35 MG, QD
     Route: 048
     Dates: start: 20150506, end: 20150615
  7. INCB018424 [Suspect]
     Active Substance: RUXOLITINIB
     Dosage: 35 MG, QD
     Route: 048
     Dates: start: 20160929, end: 20170212
  8. ALLOPURINOL. [Concomitant]
     Active Substance: ALLOPURINOL
     Indication: HYPERURICAEMIA
     Dosage: 300 MG, QD
     Route: 065
  9. METOBETA [Concomitant]
     Route: 065
  10. RAMILICH [Concomitant]
     Active Substance: RAMIPRIL
     Dosage: 1.25 MG, QD
  11. RAMILICH [Concomitant]
     Active Substance: RAMIPRIL
     Dosage: 1.25 MG, QD
  12. INCB018424 [Suspect]
     Active Substance: RUXOLITINIB
     Dosage: 40 MG, QD
     Route: 048
     Dates: start: 20141124, end: 20141221
  13. INCB018424 [Suspect]
     Active Substance: RUXOLITINIB
     Dosage: 40 MG, QD
     Route: 048
     Dates: start: 20150616, end: 20160201
  14. ALLOPURINOL. [Concomitant]
     Active Substance: ALLOPURINOL
     Dosage: 300 MG, QD
     Route: 065
  15. MCP [Concomitant]
     Active Substance: METOCLOPRAMIDE HYDROCHLORIDE
     Dosage: 60 DRP, UNK
     Route: 065
     Dates: start: 20150408
  16. RAMILICH [Concomitant]
     Active Substance: RAMIPRIL
     Dosage: 1.25 MG, QD
  17. VENLAFAXINE [Concomitant]
     Active Substance: VENLAFAXINE HYDROCHLORIDE
     Dosage: 75 MG, UNK
     Route: 065
     Dates: start: 20160426, end: 20160524
  18. INCB018424 [Suspect]
     Active Substance: RUXOLITINIB
     Dosage: 35 MG, QD
     Route: 048
     Dates: start: 20170314
  19. LEVOTHYROXINE. [Concomitant]
     Active Substance: LEVOTHYROXINE
     Indication: HYPOTHYROIDISM
     Dosage: 50 UG, QD
     Route: 065
     Dates: end: 20151203
  20. METOBETA [Concomitant]
     Route: 065
  21. LITALIR [Concomitant]
     Active Substance: HYDROXYUREA
     Indication: LEUKOCYTOSIS
     Dosage: UNK UNK, TIW (3 TIMES PER WEEK)
     Route: 065
     Dates: start: 20150728, end: 20150810
  22. LITALIR [Concomitant]
     Active Substance: HYDROXYUREA
     Dosage: UNK (2X1)
     Route: 065
     Dates: start: 20150811, end: 20150903
  23. INCB018424 [Suspect]
     Active Substance: RUXOLITINIB
     Dosage: 10 MG, QD
     Route: 048
     Dates: start: 20141106, end: 20141123
  24. INCB018424 [Suspect]
     Active Substance: RUXOLITINIB
     Dosage: 30 MG, QD
     Route: 048
     Dates: start: 20150203, end: 20150408
  25. INCB018424 [Suspect]
     Active Substance: RUXOLITINIB
     Dosage: 35 MG, QD
     Route: 048
     Dates: start: 20160202, end: 20160922
  26. MCP [Concomitant]
     Active Substance: METOCLOPRAMIDE HYDROCHLORIDE
     Indication: BONE PAIN
     Dosage: 10 MG, UNK
     Route: 065
     Dates: start: 20150408
  27. INCB018424 [Suspect]
     Active Substance: RUXOLITINIB
     Dosage: 20 MG, QD (1-0-0 (FOR NOW IN REDUCED DOSAGE))
     Route: 048
     Dates: end: 20170313
  28. LEVOTHYROXINE. [Concomitant]
     Active Substance: LEVOTHYROXINE
     Dosage: 75 UG, UNK
     Route: 065
     Dates: start: 20151204
  29. ALLOPURINOL. [Concomitant]
     Active Substance: ALLOPURINOL
     Dosage: 300 MG, QD
     Route: 065
  30. METOBETA [Concomitant]
     Indication: PRODUCT USED FOR UNKNOWN INDICATION
     Dosage: 25 MG, UNK
  31. RAMILICH [Concomitant]
     Active Substance: RAMIPRIL
     Dosage: 1.25 MG, QD
  32. VENLAFAXINE [Concomitant]
     Active Substance: VENLAFAXINE HYDROCHLORIDE
     Indication: DEPRESSION
     Dosage: 75 MG, UNK
     Route: 065
     Dates: start: 20160426, end: 20170524
  33. INCB018424 [Suspect]
     Active Substance: RUXOLITINIB
     Indication: MYELOFIBROSIS
     Dosage: 40 MG, QD (PRIOR TO STUDY INCLUSION)
     Route: 048
     Dates: start: 20141017
  34. INCB018424 [Suspect]
     Active Substance: RUXOLITINIB
     Dosage: 20 MG, QD
     Route: 048
     Dates: start: 20141222, end: 20150111
  35. ASPIRIN COMPLEX [Suspect]
     Active Substance: ASPIRIN\PSEUDOEPHEDRINE HYDROCHLORIDE
     Indication: PRODUCT USED FOR UNKNOWN INDICATION
     Dosage: SEVERAL
     Route: 065
  36. ALLOPURINOL. [Concomitant]
     Active Substance: ALLOPURINOL
     Dosage: 300 MG, QD
     Route: 065
  37. METOBETA [Concomitant]
     Route: 065
  38. IBU [Concomitant]
     Active Substance: IBUPROFEN
     Indication: PAIN IN EXTREMITY
     Dosage: 800 MG, PRN
     Route: 065
     Dates: start: 20150615
  39. VENLAFAXINE [Concomitant]
     Active Substance: VENLAFAXINE HYDROCHLORIDE
     Dosage: 150 MG, UNK
     Route: 065
     Dates: start: 20160525
  40. BELOC-ZOC MITE [Concomitant]
     Active Substance: METOPROLOL SUCCINATE
     Indication: PRODUCT USED FOR UNKNOWN INDICATION
     Dosage: (? - 0 -0)
     Route: 065
  41. INCB018424 [Suspect]
     Active Substance: RUXOLITINIB
     Dosage: 30 MG, QD
     Route: 048
     Dates: start: 20141029, end: 20141105
  42. INCB018424 [Suspect]
     Active Substance: RUXOLITINIB
     Dosage: 40 MG, QD
     Route: 048
     Dates: start: 20150409, end: 20150421
  43. INCB018424 [Suspect]
     Active Substance: RUXOLITINIB
     Dosage: 20 MG, QD
     Route: 048
     Dates: start: 20160923, end: 20160929
  44. RAMILICH [Concomitant]
     Active Substance: RAMIPRIL
     Indication: HYPERTENSION
     Dosage: 1.25 MG, UNK
     Route: 065

REACTIONS (15)
  - Seizure [Recovered/Resolved]
  - Gastric ulcer [Unknown]
  - Chronic gastritis [Unknown]
  - Vomiting [Recovered/Resolved]
  - Electrolyte imbalance [Recovered/Resolved]
  - Alcohol withdrawal syndrome [Recovered/Resolved]
  - Dehydration [Recovered/Resolved]
  - Pyrexia [Recovered/Resolved]
  - Upper gastrointestinal haemorrhage [Recovered/Resolved]
  - Gastritis [Unknown]
  - C-reactive protein increased [Recovered/Resolved]
  - Nausea [Unknown]
  - Haemoglobin decreased [Unknown]
  - Alcohol withdrawal syndrome [Recovered/Resolved]
  - Diarrhoea haemorrhagic [Unknown]

NARRATIVE: CASE EVENT DATE: 201602
